FAERS Safety Report 7031785-6 (Version None)
Quarter: 2010Q4

REPORT INFORMATION
  Report Type: 
  Country: None (occurrence: None)
  Receive Date: 20101007
  Receipt Date: 20100927
  Transmission Date: 20110411
  Serious: No
  Sender: FDA-Public Use
  Company Number: US-BIOGENIDEC-2010BI034013

PATIENT
  Age: 24 Year
  Sex: Female

DRUGS (3)
  1. TYSABRI [Suspect]
     Indication: MULTIPLE SCLEROSIS
     Route: 042
     Dates: start: 20080225, end: 20080325
  2. TYSABRI [Suspect]
     Route: 042
     Dates: start: 20081126, end: 20090320
  3. TYSABRI [Suspect]
     Route: 042
     Dates: start: 20100529

REACTIONS (1)
  - NEURALGIA [None]
